FAERS Safety Report 5115297-2 (Version None)
Quarter: 2006Q3

REPORT INFORMATION
  Report Type: 
  Country: None (occurrence: None)
  Receive Date: 20060922
  Receipt Date: 20060911
  Transmission Date: 20061208
  Serious: Yes (Death)
  Sender: FDA-Public Use
  Company Number: 225499

PATIENT
  Age: 61 Year
  Sex: Male

DRUGS (5)
  1. RITUXAN [Suspect]
     Indication: NON-HODGKIN'S LYMPHOMA
     Dosage: 650 MG, UNK; INTRAVENOUS
     Route: 042
     Dates: start: 20050119, end: 20050627
  2. CYCLOPHOSPHAMIDE [Suspect]
     Indication: NON-HODGKIN'S LYMPHOMA
     Dates: start: 20050120
  3. DOXORUBICIN (DOXORUBICIN/DOXORUBICIN HYDRO [Suspect]
     Indication: NON-HODGKIN'S LYMPHOMA
     Dates: start: 20050120
  4. VINCRISTINE [Suspect]
     Indication: NON-HODGKIN'S LYMPHOMA
     Dates: start: 20050120
  5. PREDNISONE TAB [Suspect]
     Dates: start: 20050120

REACTIONS (6)
  - DISSEMINATED INTRAVASCULAR COAGULATION [None]
  - DRUG INEFFECTIVE [None]
  - HAEMODIALYSIS [None]
  - HEPATIC ENCEPHALOPATHY [None]
  - HEPATITIS B [None]
  - MOUTH HAEMORRHAGE [None]
